FAERS Safety Report 6618837-7 (Version None)
Quarter: 2010Q1

REPORT INFORMATION
  Report Type: 
  Country: None (occurrence: None)
  Receive Date: 20100305
  Receipt Date: 20100305
  Transmission Date: 20100710
  Serious: Yes (Disabling)
  Sender: FDA-Public Use
  Company Number: None

PATIENT
  Sex: Male
  Weight: 81.8 kg

DRUGS (1)
  1. PROSCAR [Suspect]
     Indication: ALOPECIA
     Dosage: 2.5 MG DAILY ORALLY
     Route: 048

REACTIONS (5)
  - EYE DISORDER [None]
  - EYE PAIN [None]
  - FEELING ABNORMAL [None]
  - LIBIDO DECREASED [None]
  - MEMORY IMPAIRMENT [None]
